FAERS Safety Report 10384125 (Version 1)
Quarter: 2014Q3

REPORT INFORMATION
  Report Type: Spontaneous
  Country: US (occurrence: None)
  Receive Date: 20140813
  Receipt Date: 20140813
  Transmission Date: 20150326
  Serious: No
  Sender: FDA-Public Use
  Company Number: None

PATIENT
  Age: 37 Year
  Sex: Female

DRUGS (1)
  1. VIVELLE [Suspect]
     Active Substance: ESTRADIOL
     Dosage: APPLY 1 TO 4 PATCHES EVERY OTHER DAY
     Route: 062

REACTIONS (1)
  - Rash [None]

NARRATIVE: CASE EVENT DATE: 20140806
